FAERS Safety Report 9648294 (Version 1)
Quarter: 2013Q4

REPORT INFORMATION
  Report Type: Spontaneous
  Country: US (occurrence: US)
  Receive Date: 20131028
  Receipt Date: 20131028
  Transmission Date: 20140711
  Serious: No
  Sender: FDA-Public Use
  Company Number: US-B.I. PHARMACEUTICALS,INC./RIDGEFIELD-2013-BI-32949BP

PATIENT
  Sex: Female

DRUGS (2)
  1. ZANTAC 150 (RANITIDINE HYDROCHLORIDE) [Suspect]
     Dosage: MAXIMUMSTREGTH: 150
  2. IBUPROFEN [Concomitant]
     Indication: TOOTHACHE

REACTIONS (1)
  - Drug interaction [Unknown]
